FAERS Safety Report 20847922 (Version 1)
Quarter: 2022Q2

REPORT INFORMATION
  Report Type: Spontaneous
  Country: IT (occurrence: IT)
  Receive Date: 20220519
  Receipt Date: 20220519
  Transmission Date: 20220720
  Serious: Yes (Hospitalization)
  Sender: FDA-Public Use
  Company Number: IT-STRIDES ARCOLAB LIMITED-2022SP005669

PATIENT
  Age: 60 Year
  Sex: Female

DRUGS (5)
  1. PHENOBARBITAL [Interacting]
     Active Substance: PHENOBARBITAL
     Indication: Epilepsy
     Dosage: 150 MILLIGRAM, PER DAY
     Route: 065
  2. DIAZEPAM [Interacting]
     Active Substance: DIAZEPAM
     Indication: Depression
     Dosage: 4 MILLIGRAM, UNKNOWN
     Route: 065
  3. DIAZEPAM [Interacting]
     Active Substance: DIAZEPAM
     Indication: Epilepsy
  4. ESCITALOPRAM [Concomitant]
     Active Substance: ESCITALOPRAM OXALATE
     Indication: Depression
     Dosage: UNK
     Route: 065
  5. VALPROIC ACID [Concomitant]
     Active Substance: VALPROIC ACID
     Indication: Depression
     Dosage: UNK
     Route: 065

REACTIONS (15)
  - Drug interaction [Unknown]
  - Hepatotoxicity [Recovered/Resolved]
  - Stupor [Recovered/Resolved]
  - Hypertonia [Recovered/Resolved]
  - Aphasia [Recovered/Resolved]
  - Asthenia [Recovered/Resolved]
  - Gait disturbance [Recovered/Resolved]
  - Fall [Unknown]
  - Spinal cord injury [Unknown]
  - Limb injury [Unknown]
  - Irritability [Recovered/Resolved]
  - Depressed level of consciousness [Unknown]
  - Hypotension [Recovered/Resolved]
  - Overdose [Unknown]
  - Off label use [Unknown]
